FAERS Safety Report 4882630-6 (Version None)
Quarter: 2006Q1

REPORT INFORMATION
  Report Type: 
  Country: None (occurrence: None)
  Receive Date: 20060117
  Receipt Date: 20050218
  Transmission Date: 20060701
  Serious: Yes (Hospitalization)
  Sender: FDA-Public Use
  Company Number: US-MERCK-0502USA02732

PATIENT
  Age: 65 Year
  Sex: Male
  Weight: 98 kg

DRUGS (10)
  1. VIOXX [Suspect]
     Indication: ARTHRITIS
     Route: 048
     Dates: start: 19990101, end: 20040101
  2. VIOXX [Suspect]
     Indication: BACK PAIN
     Route: 048
     Dates: start: 19990101, end: 20040101
  3. HYDROCHLOROTHIAZIDE [Concomitant]
     Route: 048
  4. PRINIVIL [Concomitant]
     Route: 048
  5. PROSCAR [Concomitant]
     Route: 048
  6. ARICEPT [Concomitant]
     Route: 065
  7. PLAVIX [Concomitant]
     Route: 065
  8. PROVIGIL [Concomitant]
     Route: 065
  9. SANCTURA [Concomitant]
     Route: 065
  10. ZOCOR [Concomitant]
     Route: 048

REACTIONS (4)
  - BACK PAIN [None]
  - CEREBROVASCULAR ACCIDENT [None]
  - NAIL DISORDER [None]
  - ROTATOR CUFF SYNDROME [None]
